FAERS Safety Report 7789512-0 (Version None)
Quarter: 2011Q3

REPORT INFORMATION
  Report Type: 
  Country: None (occurrence: None)
  Receive Date: 20110930
  Receipt Date: 20110919
  Transmission Date: 20111222
  Serious: Yes (Hospitalization)
  Sender: FDA-Public Use
  Company Number: US-ELI_LILLY_AND_COMPANY-US201106003501

PATIENT
  Age: 64 Year
  Sex: Female

DRUGS (3)
  1. ZYPREXA [Suspect]
     Dosage: 10 MG, UNKNOWN
     Route: 065
  2. ZYPREXA [Suspect]
     Dosage: UNK, QOD
  3. ZYPREXA [Suspect]
     Dosage: 10 MG, QD

REACTIONS (8)
  - DRUG WITHDRAWAL SYNDROME [None]
  - DIZZINESS [None]
  - DYSPNOEA [None]
  - HEADACHE [None]
  - FATIGUE [None]
  - HOSPITALISATION [None]
  - INFLUENZA LIKE ILLNESS [None]
  - PAIN [None]
